FAERS Safety Report 9775420 (Version 2)
Quarter: 2013Q4

REPORT INFORMATION
  Report Type: Spontaneous
  Country: DE (occurrence: DE)
  Receive Date: 20131220
  Receipt Date: 20131226
  Transmission Date: 20140711
  Serious: Yes (Hospitalization, Other)
  Sender: FDA-Public Use
  Company Number: DE-BAYER-2013-154289

PATIENT
  Age: 71 Year
  Sex: Female

DRUGS (7)
  1. BETAFERON [Suspect]
     Indication: MULTIPLE SCLEROSIS
     Dosage: UNK
     Route: 058
     Dates: start: 20050125, end: 20131207
  2. GABAPENTIN [Concomitant]
  3. METOPROLOL SUCCINATE [Concomitant]
  4. PANTOZOL [Concomitant]
  5. VIGANTOLETTEN [Concomitant]
  6. BLOPRESS [Concomitant]
  7. SPASMOLYT [Concomitant]

REACTIONS (4)
  - Pancreatitis [Recovered/Resolved]
  - Breast cancer [None]
  - Bladder cancer [None]
  - Blood test abnormal [None]
